FAERS Safety Report 7549332-9 (Version None)
Quarter: 2011Q2

REPORT INFORMATION
  Report Type: 
  Country: None (occurrence: None)
  Receive Date: 20110615
  Receipt Date: 20020422
  Transmission Date: 20111010
  Serious: Yes (Hospitalization)
  Sender: FDA-Public Use
  Company Number: PHBS2002JP03103

PATIENT
  Sex: Male
  Weight: 57 kg

DRUGS (3)
  1. DIOVAN [Suspect]
     Indication: HYPERTENSION
     Dosage: 80 MG/DAY
     Route: 048
     Dates: start: 20011101, end: 20020205
  2. FLIVAS [Suspect]
  3. PRORENAL [Suspect]

REACTIONS (8)
  - ASPARTATE AMINOTRANSFERASE INCREASED [None]
  - HAEMOGLOBIN DECREASED [None]
  - BLOOD LACTATE DEHYDROGENASE INCREASED [None]
  - BLOOD ALKALINE PHOSPHATASE INCREASED [None]
  - HEPATITIS [None]
  - HAEMATOCRIT DECREASED [None]
  - ALANINE AMINOTRANSFERASE INCREASED [None]
  - RED BLOOD CELL COUNT DECREASED [None]
